FAERS Safety Report 24732125 (Version 4)
Quarter: 2025Q1

REPORT INFORMATION
  Report Type: Report from Study
  Country: CA (occurrence: CA)
  Receive Date: 20241213
  Receipt Date: 20250122
  Transmission Date: 20250409
  Serious: Yes (Other)
  Sender: JOHNSON AND JOHNSON
  Company Number: CA-JNJFOC-20240938282

PATIENT
  Age: 68 Year
  Sex: Female

DRUGS (2)
  1. SIMPONI [Suspect]
     Active Substance: GOLIMUMAB
     Indication: Rheumatoid arthritis
     Dosage: ON 12-SEP-2024, THE PATIENT RECEIVED 6TH INJECTION OF GOLIMUMAB AT A DOSE OF 50 MG.?LAST DOSE OF SIM
     Route: 058
     Dates: start: 20240425
  2. SIMPONI [Suspect]
     Active Substance: GOLIMUMAB
     Dosage: ON 12-SEP-2024, THE PATIENT RECEIVED 6TH INJECTION OF GOLIMUMAB AT A DOSE OF 50 MG.
     Route: 058
     Dates: start: 20240424

REACTIONS (3)
  - Abscess [Recovered/Resolved]
  - Cyst [Recovered/Resolved]
  - Musculoskeletal stiffness [Unknown]
